FAERS Safety Report 7358008-2 (Version None)
Quarter: 2011Q1

REPORT INFORMATION
  Report Type: 
  Country: None (occurrence: None)
  Receive Date: 20110317
  Receipt Date: 20110314
  Transmission Date: 20110831
  Serious: Yes (Other)
  Sender: FDA-Public Use
  Company Number: US-PFIZER INC-2011056282

PATIENT
  Sex: Female
  Weight: 102.04 kg

DRUGS (4)
  1. CALAN [Suspect]
     Indication: HYPERTENSION
     Dosage: 180 MG, 1X/DAY
     Route: 048
     Dates: start: 20010201
  2. MONTELUKAST SODIUM [Suspect]
     Dosage: UNK
  3. VERAPAMIL [Suspect]
     Indication: MIGRAINE
     Dosage: UNK
  4. CALAN [Suspect]
     Indication: MIGRAINE
     Dosage: 180 MG, 1X/DAY
     Route: 048

REACTIONS (5)
  - PAIN [None]
  - ANAPHYLACTIC SHOCK [None]
  - STILLBIRTH [None]
  - HEADACHE [None]
  - ANAEMIA [None]
